FAERS Safety Report 6472003-7 (Version None)
Quarter: 2009Q4

REPORT INFORMATION
  Report Type: 
  Country: None (occurrence: None)
  Receive Date: 20091203
  Receipt Date: 20080507
  Transmission Date: 20100525
  Serious: Yes (Other)
  Sender: FDA-Public Use
  Company Number: IE-ELI_LILLY_AND_COMPANY-IE200804000798

PATIENT
  Age: 68 Year
  Sex: Male

DRUGS (5)
  1. CYMBALTA [Suspect]
     Indication: DEPRESSION
     Dosage: 30, UNKNOWN
     Route: 048
     Dates: start: 20071201
  2. CYMBALTA [Suspect]
     Dosage: 60, UNKNOWN
     Route: 048
     Dates: end: 20080201
  3. WARFARIN SODIUM [Concomitant]
     Dosage: UNK, UNKNOWN
     Route: 048
  4. ASPIRIN [Concomitant]
     Dosage: 75, UNKNOWN
     Route: 065
  5. LASIX [Concomitant]
     Dosage: UNK, UNKNOWN
     Route: 065

REACTIONS (2)
  - GAMMA-GLUTAMYLTRANSFERASE INCREASED [None]
  - LIVER FUNCTION TEST ABNORMAL [None]
